FAERS Safety Report 23766300 (Version 9)
Quarter: 2025Q3

REPORT INFORMATION
  Report Type: Report from Study
  Country: US (occurrence: US)
  Receive Date: 20240422
  Receipt Date: 20250930
  Transmission Date: 20251021
  Serious: Yes (Hospitalization, Other)
  Sender: TAKEDA
  Company Number: US-TAKEDA-2023TUS072611

PATIENT
  Age: 48 Year
  Sex: Female
  Weight: 53 kg

DRUGS (69)
  1. TEDUGLUTIDE [Suspect]
     Active Substance: TEDUGLUTIDE
     Indication: Short-bowel syndrome
     Dosage: 2.5 MILLIGRAM, QD
  2. TEDUGLUTIDE [Suspect]
     Active Substance: TEDUGLUTIDE
     Dosage: 2.5 MILLIGRAM, QD
  3. TEDUGLUTIDE [Suspect]
     Active Substance: TEDUGLUTIDE
     Dosage: 0.2 MILLILITER, QD
  4. TEDUGLUTIDE [Suspect]
     Active Substance: TEDUGLUTIDE
     Dosage: 2.5 MILLIGRAM, QD
  5. TEDUGLUTIDE [Suspect]
     Active Substance: TEDUGLUTIDE
     Dosage: 2.5 MILLIGRAM, QD
     Dates: start: 2022
  6. TEDUGLUTIDE [Suspect]
     Active Substance: TEDUGLUTIDE
     Dosage: 2.5 MILLIGRAM, QD
  7. TEDUGLUTIDE [Suspect]
     Active Substance: TEDUGLUTIDE
     Dosage: 2.9 MILLIGRAM, QD
  8. TEDUGLUTIDE [Suspect]
     Active Substance: TEDUGLUTIDE
     Dosage: 2.9 MILLIGRAM, QD
  9. TEDUGLUTIDE [Suspect]
     Active Substance: TEDUGLUTIDE
     Dosage: 3.8 MILLIGRAM, QD
  10. TRAMADOL HCL [Concomitant]
     Active Substance: TRAMADOL HYDROCHLORIDE
     Dosage: 100 MILLIGRAM, QD
  11. HUMALOG [Concomitant]
     Active Substance: INSULIN LISPRO
  12. PROMETHAZINE HYDROCHLORIDE [Concomitant]
     Active Substance: PROMETHAZINE HYDROCHLORIDE
  13. LANTUS SOLOSTAR [Concomitant]
     Active Substance: INSULIN GLARGINE
  14. METOPROLOL SUCCINATE [Concomitant]
     Active Substance: METOPROLOL SUCCINATE
     Dosage: 25 MILLIGRAM, QD
  15. OXYCODONE HYDROCHLORIDE [Concomitant]
     Active Substance: OXYCODONE HYDROCHLORIDE
  16. REMERON [Concomitant]
     Active Substance: MIRTAZAPINE
  17. ONDANSETRON [Concomitant]
     Active Substance: ONDANSETRON
  18. PRILOSEC [Concomitant]
     Active Substance: OMEPRAZOLE MAGNESIUM
  19. LORAZEPAM [Concomitant]
     Active Substance: LORAZEPAM
  20. BUPRENORPHINE AND NALOXONE [Concomitant]
     Active Substance: BUPRENORPHINE HYDROCHLORIDE\NALOXONE HYDROCHLORIDE
  21. GABAPENTIN [Concomitant]
     Active Substance: GABAPENTIN
  22. PROMETHEGAN [Concomitant]
     Active Substance: PROMETHAZINE HYDROCHLORIDE
  23. LEVOTHYROXINE SODIUM [Concomitant]
     Active Substance: LEVOTHYROXINE SODIUM
  24. CLINDAMYCIN HYDROCHLORIDE [Concomitant]
     Active Substance: CLINDAMYCIN HYDROCHLORIDE
  25. ATORVASTATIN CALCIUM [Concomitant]
     Active Substance: ATORVASTATIN CALCIUM
  26. CYANOCOBALAMIN [Concomitant]
     Active Substance: CYANOCOBALAMIN
  27. PREDNISONE [Concomitant]
     Active Substance: PREDNISONE
  28. CYPROHEPTADINE HYDROCHLORIDE [Concomitant]
     Active Substance: CYPROHEPTADINE HYDROCHLORIDE
  29. SCOPOLAMINE [Concomitant]
     Active Substance: SCOPOLAMINE
     Dosage: 1 MILLIGRAM, Q72H
  30. LAMOTRIGINE [Concomitant]
     Active Substance: LAMOTRIGINE
  31. AZELASTINE HYDROCHLORIDE [Concomitant]
     Active Substance: AZELASTINE HYDROCHLORIDE
  32. BACLOFEN [Concomitant]
     Active Substance: BACLOFEN
  33. DIPHENOXYLATE HYDROCHLORIDE AND ATROPINE SULFATE [Concomitant]
     Active Substance: ATROPINE SULFATE\DIPHENOXYLATE HYDROCHLORIDE
  34. FISH OIL [Concomitant]
     Active Substance: FISH OIL
  35. SUBOXONE [Concomitant]
     Active Substance: BUPRENORPHINE HYDROCHLORIDE\NALOXONE HYDROCHLORIDE
  36. POTASSIUM CHLORIDE [Concomitant]
     Active Substance: POTASSIUM CHLORIDE
  37. HYDROMORPHONE HCL [Concomitant]
     Active Substance: HYDROMORPHONE HYDROCHLORIDE
  38. HYDROXYZINE HYDROCHLORIDE [Concomitant]
     Active Substance: HYDROXYZINE HYDROCHLORIDE
  39. LINEZOLID [Concomitant]
     Active Substance: LINEZOLID
  40. SODIUM CHLORIDE [Concomitant]
     Active Substance: SODIUM CHLORIDE
  41. CLONAZEPAM [Concomitant]
     Active Substance: CLONAZEPAM
  42. IMIPRAMINE HYDROCHLORIDE [Concomitant]
     Active Substance: IMIPRAMINE HYDROCHLORIDE
  43. MARINOL [Concomitant]
     Active Substance: DRONABINOL
  44. ONDANSETRON HYDROCHLORIDE [Concomitant]
     Active Substance: ONDANSETRON HYDROCHLORIDE
  45. XIFAXAN [Concomitant]
     Active Substance: RIFAXIMIN
  46. SYNTHROID [Concomitant]
     Active Substance: LEVOTHYROXINE SODIUM
  47. LOMOTIL [Concomitant]
     Active Substance: ATROPINE SULFATE\DIPHENOXYLATE HYDROCHLORIDE
  48. PROTONIX [Concomitant]
     Active Substance: PANTOPRAZOLE SODIUM
  49. PROTONIX [Concomitant]
     Active Substance: PANTOPRAZOLE SODIUM
  50. SPIRIVA [Concomitant]
     Active Substance: TIOTROPIUM BROMIDE MONOHYDRATE
  51. VENTOLIN HFA [Concomitant]
     Active Substance: ALBUTEROL SULFATE
  52. BREO ELLIPTA [Concomitant]
     Active Substance: FLUTICASONE FUROATE\VILANTEROL TRIFENATATE
  53. TOPROL XL [Concomitant]
     Active Substance: METOPROLOL SUCCINATE
     Dosage: 25 MILLIGRAM, QD
  54. LIPITOR [Concomitant]
     Active Substance: ATORVASTATIN CALCIUM
  55. HYDROCODONE BITARTRATE AND ACETAMINOPHEN [Concomitant]
     Active Substance: ACETAMINOPHEN\HYDROCODONE BITARTRATE
  56. ZENPEP [Concomitant]
     Active Substance: PANCRELIPASE AMYLASE\PANCRELIPASE LIPASE\PANCRELIPASE PROTEASE
  57. EPIPEN [Concomitant]
     Active Substance: EPINEPHRINE
  58. ATIVAN [Concomitant]
     Active Substance: LORAZEPAM
  59. IBUPROFEN [Concomitant]
     Active Substance: IBUPROFEN
  60. OMEPRAZOLE [Concomitant]
     Active Substance: OMEPRAZOLE
  61. LANTUS [Concomitant]
     Active Substance: INSULIN GLARGINE
  62. DILAUDID [Concomitant]
     Active Substance: HYDROMORPHONE HYDROCHLORIDE
  63. REGLAN [Concomitant]
     Active Substance: METOCLOPRAMIDE HYDROCHLORIDE
  64. ZOFRAN [Concomitant]
     Active Substance: ONDANSETRON HYDROCHLORIDE
  65. LIBRAX [Concomitant]
     Active Substance: CHLORDIAZEPOXIDE HYDROCHLORIDE\CLIDINIUM BROMIDE
  66. Gentop [Concomitant]
  67. SOMA [Concomitant]
     Active Substance: CARISOPRODOL
     Indication: Muscle relaxant therapy
  68. INSULIN NOS [Concomitant]
     Active Substance: INSULIN NOS
  69. MORPHINE SULFATE [Concomitant]
     Active Substance: MORPHINE SULFATE

REACTIONS (12)
  - Gastritis [Not Recovered/Not Resolved]
  - Vascular device infection [Unknown]
  - Blood glucose abnormal [Unknown]
  - Renal failure [Unknown]
  - Pancreatitis [Unknown]
  - Decreased appetite [Unknown]
  - Weight increased [Unknown]
  - Hunger [Unknown]
  - Product dose omission issue [Unknown]
  - Product storage error [Unknown]
  - Weight decreased [Unknown]
  - Injection site induration [Unknown]

NARRATIVE: CASE EVENT DATE: 20241128
